FAERS Safety Report 11579880 (Version 4)
Quarter: 2016Q1

REPORT INFORMATION
  Report Type: Spontaneous
  Country: JP (occurrence: JP)
  Receive Date: 20150930
  Receipt Date: 20160201
  Transmission Date: 20160525
  Serious: Yes (Hospitalization, Disabling, Other)
  Sender: FDA-Public Use
  Company Number: JP-PFIZER INC-2015324279

PATIENT
  Age: 63 Year
  Sex: Male
  Weight: 69 kg

DRUGS (10)
  1. LIPIDIL EZ [Suspect]
     Active Substance: FENOFIBRATE
     Indication: HYPERLIPIDAEMIA
     Dosage: 80 MG, 2X/DAY
     Route: 048
     Dates: start: 20130328, end: 20150915
  2. ORGADRONE [Concomitant]
     Active Substance: DEXAMETHASONE SODIUM PHOSPHATE
     Indication: PAIN IN EXTREMITY
     Dosage: UNK
     Dates: start: 20150908
  3. NEXIUM [Concomitant]
     Active Substance: ESOMEPRAZOLE MAGNESIUM
     Indication: GASTROOESOPHAGEAL REFLUX DISEASE
     Dosage: 10 MG, 1X/DAY
     Route: 048
     Dates: end: 20150925
  4. ZETIA [Concomitant]
     Active Substance: EZETIMIBE
     Indication: HYPERLIPIDAEMIA
     Dosage: 10 MG, 1X/DAY
     Route: 048
     Dates: end: 20150915
  5. XYLOCAINE [Concomitant]
     Active Substance: LIDOCAINE HYDROCHLORIDE
     Indication: PAIN IN EXTREMITY
     Dosage: UNK
     Dates: start: 20150908
  6. AMARYL [Concomitant]
     Active Substance: GLIMEPIRIDE
     Indication: DIABETES MELLITUS
     Dosage: 0.25 MG, 1X/DAY
     Route: 048
     Dates: start: 20140120, end: 20150915
  7. FUROSEMIDE. [Concomitant]
     Active Substance: FUROSEMIDE
     Indication: POLYURIA
     Dosage: 20 MG, 3X/DAY
     Route: 048
     Dates: start: 20150916
  8. TRAZENTA [Concomitant]
     Active Substance: LINAGLIPTIN
     Indication: DIABETES MELLITUS
     Dosage: 5 MG, 1X/DAY
     Route: 048
     Dates: start: 20131008, end: 20150915
  9. LYRICA [Suspect]
     Active Substance: PREGABALIN
     Indication: PAIN IN EXTREMITY
     Dosage: 75 MG, 2X/DAY
     Route: 048
     Dates: start: 20150908, end: 20150915
  10. AMLODIPINE [Concomitant]
     Active Substance: AMLODIPINE BESYLATE
     Indication: HYPERTENSION
     Dosage: 5 MG, 1X/DAY
     Route: 048
     Dates: start: 20150916

REACTIONS (4)
  - Acute kidney injury [Recovered/Resolved with Sequelae]
  - Rhabdomyolysis [Recovered/Resolved with Sequelae]
  - Hydronephrosis [Recovered/Resolved]
  - Ureteric cancer recurrent [Unknown]

NARRATIVE: CASE EVENT DATE: 20150916
